FAERS Safety Report 8746284 (Version 2)
Quarter: 2012Q4

REPORT INFORMATION
  Report Type: 
  Country: US (occurrence: US)
  Receive Date: 20120827
  Receipt Date: 20120913
  Transmission Date: 20130627
  Serious: Yes (Other)
  Sender: FDA-Public Use
  Company Number: US-JNJFOC-20120809958

PATIENT
  Age: 31 Year
  Sex: Female
  Weight: 67.68 kg

DRUGS (7)
  1. INVEGA [Suspect]
     Indication: BIPOLAR II DISORDER
     Route: 048
  2. INVEGA [Suspect]
     Indication: BIPOLAR II DISORDER
     Route: 048
     Dates: start: 201206, end: 2012
  3. INVEGA [Suspect]
     Indication: BIPOLAR II DISORDER
     Dosage: Q 6 PM
     Route: 048
     Dates: start: 20120418
  4. EFFEXOR [Concomitant]
     Route: 048
  5. KLONOPIN [Concomitant]
     Dosage: 0.5 mg in am and 0.75 mg in pm
     Route: 048
  6. LORATIDINE [Concomitant]
     Dosage: 0.5 mg in am and 0.75 mg in pm
     Route: 048
  7. DEPO-PROVERA [Concomitant]
     Dosage: 0.5 mg in am and 0.75 mg in pm
     Route: 030

REACTIONS (1)
  - Weight increased [Unknown]
